FAERS Safety Report 7586416-3 (Version None)
Quarter: 2011Q3

REPORT INFORMATION
  Report Type: 
  Country: None (occurrence: None)
  Receive Date: 20110701
  Receipt Date: 20110620
  Transmission Date: 20111222
  Serious: Yes (Death, Life-Threatening, Hospitalization)
  Sender: FDA-Public Use
  Company Number: B0707267A

PATIENT
  Sex: Male
  Weight: 65 kg

DRUGS (14)
  1. BENAMBAX [Concomitant]
     Dosage: 250MG PER DAY
     Dates: start: 20110301
  2. PROMACTA [Suspect]
     Indication: IDIOPATHIC THROMBOCYTOPENIC PURPURA
     Dosage: 12.5MG PER DAY
     Route: 048
     Dates: start: 20110225, end: 20110308
  3. SULFAMETHOXAZOLE [Concomitant]
     Dosage: 80MG PER DAY
     Route: 048
  4. RABEPRAZOLE SODIUM [Concomitant]
     Indication: PROPHYLAXIS
     Dosage: 10MG PER DAY
     Route: 048
  5. ACTONEL [Concomitant]
     Indication: PROPHYLAXIS
     Dosage: 17.5MG PER DAY
     Route: 048
  6. PURSENNID [Concomitant]
     Dosage: 24MG PER DAY
     Route: 048
     Dates: start: 20110228
  7. IMMUNE GLOBULIN INTRAVENOUS (HUMAN) [Concomitant]
     Indication: IDIOPATHIC THROMBOCYTOPENIC PURPURA
     Dosage: 25G PER DAY
     Route: 042
     Dates: start: 20110228, end: 20110303
  8. DORIPENEM MONOHYDRATE [Concomitant]
     Dosage: 1.5G PER DAY
     Route: 042
     Dates: start: 20110302
  9. UNSPECIFIED MEDICATION [Concomitant]
     Dosage: 300MG PER DAY
     Route: 042
     Dates: start: 20110228, end: 20110311
  10. VFEND [Concomitant]
     Dosage: 400MG PER DAY
     Route: 048
  11. DECADRON [Concomitant]
     Indication: IDIOPATHIC THROMBOCYTOPENIC PURPURA
     Dosage: 3IUAX PER DAY
     Route: 048
  12. NEORAL [Concomitant]
     Indication: IDIOPATHIC THROMBOCYTOPENIC PURPURA
     Dosage: 100MG PER DAY
     Route: 048
  13. PROMACTA [Suspect]
     Dosage: 25MG PER DAY
     Route: 048
     Dates: start: 20110309
  14. CLINDAMYCIN HCL [Concomitant]
     Dosage: 2400MG PER DAY
     Dates: start: 20110225, end: 20110302

REACTIONS (3)
  - PULMONARY ALVEOLAR HAEMORRHAGE [None]
  - CARDIO-RESPIRATORY ARREST [None]
  - DELIRIUM [None]
